FAERS Safety Report 10563324 (Version 1)
Quarter: 2014Q4

REPORT INFORMATION
  Report Type: Spontaneous
  Country: US (occurrence: None)
  Receive Date: 20141103
  Receipt Date: 20141103
  Transmission Date: 20150529
  Serious: Yes (Other)
  Sender: FDA-Public Use
  Company Number: None

PATIENT
  Age: 15 Year
  Sex: Male
  Weight: 64.41 kg

DRUGS (1)
  1. CLONAZEPAM. [Suspect]
     Active Substance: CLONAZEPAM
     Indication: ANXIETY
     Route: 048
     Dates: start: 20140827, end: 20141101

REACTIONS (7)
  - Coordination abnormal [None]
  - Dizziness [None]
  - Depressed mood [None]
  - Suicidal ideation [None]
  - Fatigue [None]
  - Tremor [None]
  - Decreased interest [None]

NARRATIVE: CASE EVENT DATE: 20141031
